FAERS Safety Report 6455448-0 (Version None)
Quarter: 2009Q4

REPORT INFORMATION
  Report Type: 
  Country: None (occurrence: None)
  Receive Date: 20091125
  Receipt Date: 20091006
  Transmission Date: 20100525
  Serious: No
  Sender: FDA-Public Use
  Company Number: US-ABBOTT-09P-163-0602095-00

PATIENT
  Sex: Female
  Weight: 72.64 kg

DRUGS (1)
  1. SIMCOR [Suspect]
     Indication: BLOOD CHOLESTEROL INCREASED
     Dosage: 500/20
     Route: 048
     Dates: start: 20090501

REACTIONS (5)
  - BURNING SENSATION [None]
  - ERYTHEMA [None]
  - FLUSHING [None]
  - PALPITATIONS [None]
  - PARAESTHESIA [None]
